FAERS Safety Report 8070851-3 (Version None)
Quarter: 2012Q1

REPORT INFORMATION
  Report Type: 
  Country: None (occurrence: None)
  Receive Date: 20120125
  Receipt Date: 20120116
  Transmission Date: 20120608
  Serious: Yes (Other)
  Sender: FDA-Public Use
  Company Number: JP-GLAXOSMITHKLINE-B0776522A

PATIENT
  Age: 54 Year
  Sex: Male

DRUGS (5)
  1. SUMATRIPTAN SUCCINATE [Suspect]
     Dosage: 28IUAX IN THE MORNING
     Route: 048
  2. SUMATRIPTAN SUCCINATE [Suspect]
     Dosage: 3IUAX IN THE MORNING
     Route: 058
     Dates: start: 20090101
  3. SUMATRIPTAN SUCCINATE [Suspect]
     Dosage: 40IUAX PER DAY
     Route: 048
     Dates: start: 20060101
  4. SUMATRIPTAN SUCCINATE [Suspect]
     Dosage: 60IUAX IN THE MORNING
     Route: 048
     Dates: start: 20090101
  5. SUMATRIPTAN SUCCINATE [Suspect]
     Indication: HEADACHE
     Route: 048
     Dates: start: 20010101

REACTIONS (3)
  - DRUG INEFFECTIVE [None]
  - HEADACHE [None]
  - DRUG ABUSE [None]
